FAERS Safety Report 4808498-1 (Version None)
Quarter: 2005Q4

REPORT INFORMATION
  Report Type: 
  Country: None (occurrence: None)
  Receive Date: 20051021
  Receipt Date: 20030605
  Transmission Date: 20060501
  Serious: No
  Sender: FDA-Public Use
  Company Number: DE_030611426

PATIENT
  Age: 35 Year
  Sex: Female

DRUGS (2)
  1. ZYPREXA [Suspect]
     Indication: DELUSIONAL DISORDER, PERSECUTORY TYPE
     Dosage: 10 MG/1 IN THE EVENING
     Dates: start: 20030515, end: 20030528
  2. KALINOR-BRAUSETABLETTEN [Concomitant]

REACTIONS (5)
  - ALANINE AMINOTRANSFERASE INCREASED [None]
  - ASPARTATE AMINOTRANSFERASE INCREASED [None]
  - GAMMA-GLUTAMYLTRANSFERASE INCREASED [None]
  - HAEMOGLOBIN DECREASED [None]
  - RED BLOOD CELL COUNT DECREASED [None]
